FAERS Safety Report 22643445 (Version 1)
Quarter: 2023Q2

REPORT INFORMATION
  Report Type: Spontaneous
  Country: DE (occurrence: DE)
  Receive Date: 20230627
  Receipt Date: 20230627
  Transmission Date: 20230722
  Serious: Yes (Death)
  Sender: FDA-Public Use
  Company Number: DE-009507513-2210DEU009319

PATIENT
  Age: 60 Year
  Sex: Female

DRUGS (4)
  1. PEMETREXED DIARGININE [Suspect]
     Active Substance: PEMETREXED DIARGININE
     Indication: Non-small cell lung cancer
     Dosage: 719 MILLIGRAM 3 WEEKLY
     Route: 042
     Dates: start: 20220906
  2. CARBOPLATIN [Suspect]
     Active Substance: CARBOPLATIN
     Indication: Non-small cell lung cancer
     Dosage: 488 MILLIGRAM; 3 WEEKLY
     Route: 042
     Dates: start: 20220906
  3. PEMBROLIZUMAB [Suspect]
     Active Substance: PEMBROLIZUMAB
     Indication: Non-small cell lung cancer
     Dosage: 200 MILLIGRAM, EVERY 3 WEEKS
     Route: 042
     Dates: start: 20220906
  4. SOTORASIB [Concomitant]
     Active Substance: SOTORASIB
     Indication: Non-small cell lung cancer
     Dosage: 960 MILLIGRAM, ONCE A DAY
     Route: 048
     Dates: start: 20230511, end: 20230605

REACTIONS (2)
  - General physical health deterioration [Fatal]
  - Nausea [Recovered/Resolved]

NARRATIVE: CASE EVENT DATE: 20220923
